FAERS Safety Report 4445257-6 (Version None)
Quarter: 2004Q3

REPORT INFORMATION
  Report Type: 
  Country: None (occurrence: None)
  Receive Date: 20040907
  Receipt Date: 20040820
  Transmission Date: 20050211
  Serious: Yes (Death)
  Sender: FDA-Public Use
  Company Number: 04P-087-0267982-00

PATIENT
  Age: 76 Year
  Sex: Male

DRUGS (9)
  1. ISOPTIN [Suspect]
     Indication: TACHYARRHYTHMIA
     Dosage: 40 MG, 0600; 1400; 2200, PER ORAL
     Route: 048
     Dates: start: 20040715, end: 20040718
  2. VERAPAMIL [Suspect]
     Indication: TACHYARRHYTHMIA
     Dosage: 5 MG, ONCE
     Dates: start: 20040715, end: 20040715
  3. VALSARTAN [Suspect]
     Indication: HYPERTENSION
     Dosage: 80 MG, 1 IN 1 D, PER ORAL
     Route: 048
     Dates: start: 20040715, end: 20040718
  4. HEPARIN SODIUM [Suspect]
     Dates: start: 20040715, end: 20040715
  5. BISOPROLOL FUMARATE [Suspect]
     Indication: HEART RATE ABNORMAL
     Dosage: 10 IU, 1 IN 1 D, PER ORAL
     Route: 048
     Dates: start: 20040716, end: 20040718
  6. ACETYLSALICYLIC ACID [Suspect]
     Dosage: 2.5 MG, 1 IN 1 D, PER ORAL
     Route: 048
     Dates: start: 20040716, end: 20040718
  7. ISOSORBIDE DINITRATE [Suspect]
     Dosage: SEE IMAGE
     Dates: start: 20040716, end: 20040718
  8. ISOSORBIDE DINITRATE [Suspect]
     Dosage: SEE IMAGE
     Dates: start: 20040716, end: 20040718
  9. WARFARIN POTASIUM [Suspect]
     Dosage: 2 MG, 1 IN  1 D, PER ORAL
     Route: 048
     Dates: start: 20040715, end: 20040718

REACTIONS (5)
  - DYSPNOEA [None]
  - ELECTROMECHANICAL DISSOCIATION [None]
  - HEART RATE INCREASED [None]
  - LOSS OF CONSCIOUSNESS [None]
  - PULMONARY EMBOLISM [None]
